FAERS Safety Report 13252478 (Version 1)
Quarter: 2017Q1

REPORT INFORMATION
  Report Type: Spontaneous
  Country: DE (occurrence: DE)
  Receive Date: 20170220
  Receipt Date: 20170220
  Transmission Date: 20170428
  Serious: Yes (Hospitalization)
  Sender: FDA-Public Use
  Company Number: DE-JNJFOC-20170215844

PATIENT
  Age: 69 Year
  Sex: Female

DRUGS (1)
  1. STELARA [Suspect]
     Active Substance: USTEKINUMAB
     Indication: PRODUCT USED FOR UNKNOWN INDICATION
     Route: 058
     Dates: start: 20161215, end: 20170105

REACTIONS (4)
  - Myalgia [Unknown]
  - Arthralgia [Unknown]
  - Dyspnoea [Unknown]
  - Hip surgery [Unknown]
